FAERS Safety Report 8379733-0 (Version None)
Quarter: 2012Q2

REPORT INFORMATION
  Report Type: 
  Country: None (occurrence: None)
  Receive Date: 20120523
  Receipt Date: 20120521
  Transmission Date: 20120825
  Serious: Yes (Other)
  Sender: FDA-Public Use
  Company Number: DE-SANOFI-AVENTIS-2012SA035577

PATIENT
  Age: 73 Year
  Sex: Female
  Weight: 85 kg

DRUGS (5)
  1. PIRETANIDE [Concomitant]
     Route: 048
  2. BISOPROLOL FUMARATE [Concomitant]
     Indication: ATRIAL FIBRILLATION
     Route: 048
  3. MARCUMAR [Concomitant]
     Indication: ATRIAL FIBRILLATION
     Dosage: NACH INR
     Route: 048
  4. MULTAQ [Suspect]
     Indication: ATRIAL FIBRILLATION
     Dosage: DAILY DOSE: 400 MG MILLGRAM(S) EVERY DAYS
     Route: 048
     Dates: end: 20111205
  5. SIMVASTATIN [Concomitant]
     Indication: HYPERCHOLESTEROLAEMIA
     Route: 048

REACTIONS (1)
  - ALVEOLITIS [None]
